FAERS Safety Report 8252209-7 (Version None)
Quarter: 2012Q2

REPORT INFORMATION
  Report Type: 
  Country: None (occurrence: None)
  Receive Date: 20120402
  Receipt Date: 20110830
  Transmission Date: 20120825
  Serious: No
  Sender: FDA-Public Use
  Company Number: US-ABBOTT-11P-163-0851125-00

PATIENT
  Sex: Male
  Weight: 109.87 kg

DRUGS (5)
  1. UNKNOWN MEDICATION [Concomitant]
     Indication: BLOOD CHOLESTEROL
  2. UNKNOWN MEDICATION [Concomitant]
     Indication: DIABETES MELLITUS
  3. ANDROGEL [Suspect]
     Dosage: PACKETS
     Dates: start: 20110829
  4. MORPHINE [Concomitant]
     Indication: NEUROPATHY PERIPHERAL
  5. ANDROGEL [Suspect]
     Indication: BLOOD TESTOSTERONE DECREASED
     Dosage: PACKETS
     Dates: start: 20110201

REACTIONS (2)
  - BLOOD GLUCOSE INCREASED [None]
  - BLOOD TESTOSTERONE DECREASED [None]
